FAERS Safety Report 22135687 (Version 2)
Quarter: 2023Q2

REPORT INFORMATION
  Report Type: Spontaneous
  Country: US (occurrence: US)
  Receive Date: 20230324
  Receipt Date: 20230411
  Transmission Date: 20230721
  Serious: Yes (Other)
  Sender: FDA-Public Use
  Company Number: US-APOTEX-2023AP005306

PATIENT
  Sex: Female

DRUGS (7)
  1. PAROXETINE [Suspect]
     Active Substance: PAROXETINE
     Indication: Anxiety
     Dosage: 1 DOSAGE FORM, QD
     Route: 048
     Dates: start: 2014
  2. PAROXETINE [Suspect]
     Active Substance: PAROXETINE
     Indication: Anxiety
     Dosage: UNK
     Route: 065
     Dates: start: 202210
  3. PAROXETINE [Suspect]
     Active Substance: PAROXETINE
     Indication: Anxiety
     Dosage: 1 DOSAGE FORM, QD
     Route: 048
     Dates: start: 20221212
  4. PAROXETINE [Suspect]
     Active Substance: PAROXETINE
     Dosage: 15 MILLIGRAM, QD (SHE CUT THE 20MG TABLET)
     Route: 048
     Dates: start: 202301
  5. PAROXETINE [Suspect]
     Active Substance: PAROXETINE
     Dosage: 10 MILLIGRAM, QD
     Route: 048
     Dates: start: 2023
  6. PAROXETINE [Suspect]
     Active Substance: PAROXETINE
     Indication: Anxiety
     Dosage: UNK
     Route: 065
     Dates: start: 2022
  7. PAROXETINE [Suspect]
     Active Substance: PAROXETINE
     Dosage: 0.5 DOSAGE FORM, QD
     Route: 048
     Dates: start: 2023

REACTIONS (15)
  - Drug dependence [Not Recovered/Not Resolved]
  - Disorientation [Not Recovered/Not Resolved]
  - Fatigue [Not Recovered/Not Resolved]
  - Product substitution issue [Unknown]
  - Confusional state [Unknown]
  - Brain fog [Unknown]
  - Palpitations [Not Recovered/Not Resolved]
  - Anxiety [Not Recovered/Not Resolved]
  - Headache [Not Recovered/Not Resolved]
  - Nightmare [Not Recovered/Not Resolved]
  - Asthenia [Not Recovered/Not Resolved]
  - Dizziness [Not Recovered/Not Resolved]
  - Insomnia [Not Recovered/Not Resolved]
  - Decreased appetite [Not Recovered/Not Resolved]
  - Somnolence [Unknown]
